FAERS Safety Report 4458500-4 (Version None)
Quarter: 2004Q3

REPORT INFORMATION
  Report Type: 
  Country: None (occurrence: None)
  Receive Date: 20040922
  Receipt Date: 20040811
  Transmission Date: 20050211
  Serious: Yes (Hospitalization)
  Sender: FDA-Public Use
  Company Number: US-SHR-03-005790

PATIENT
  Age: 41 Year
  Sex: Female
  Weight: 102 kg

DRUGS (11)
  1. BETASERON [Suspect]
     Indication: SECONDARY PROGRESSIVE MULTIPLE SCLEROSIS
     Dosage: 8 MIU, EVERY 2D, SUBCUTANEOUS
     Route: 058
     Dates: start: 20020221
  2. BACLOFEN [Concomitant]
  3. NEURONTIN [Concomitant]
  4. NORTRIPTYLINE HCL [Concomitant]
  5. ZANAFLEX [Concomitant]
  6. VALIUM [Concomitant]
  7. ZOCOR [Concomitant]
  8. ABELIDE [Concomitant]
  9. AVAPRO [Concomitant]
  10. ADVAIR DISKUS (FLUTICAONSE PROPIONATE, SALMETEROL XINAFOATE) [Concomitant]
  11. RADIATION THERAPY [Concomitant]

REACTIONS (1)
  - MULTIPLE SCLEROSIS [None]
